FAERS Safety Report 8001213-2 (Version None)
Quarter: 2011Q4

REPORT INFORMATION
  Report Type: 
  Country: None (occurrence: None)
  Receive Date: 20111220
  Receipt Date: 20111213
  Transmission Date: 20120403
  Serious: Yes (Life-Threatening, Hospitalization)
  Sender: FDA-Public Use
  Company Number: 2011SP015398

PATIENT
  Age: 20 Year
  Sex: Female
  Weight: 54.8852 kg

DRUGS (5)
  1. IMPLANON [Suspect]
  2. ALBUTEROL [Concomitant]
  3. IMPLANON [Suspect]
     Indication: CONTRACEPTION
     Dosage: 1 DF; SBDE
     Route: 059
     Dates: start: 20090129, end: 20110415
  4. IMPLANON [Suspect]
     Indication: CONTRACEPTION
     Dosage: 1 DF; SBDE
     Route: 059
     Dates: start: 20110415
  5. ANTIBIOTICS [Suspect]
     Indication: DRUG INTERACTION
     Dosage: IV
     Route: 042
     Dates: start: 20100801

REACTIONS (3)
  - METRORRHAGIA [None]
  - SEPSIS [None]
  - PYELONEPHRITIS [None]
